FAERS Safety Report 6559070 (Version 2)
Quarter: 2012Q4

REPORT INFORMATION
  Report Type: 
  Country: US (occurrence: US)
  Receive Date: 20080222
  Receipt Date: 20120829
  Transmission Date: 20130627
  Serious: Yes (Other)
  Sender: FDA-Public Use
  Company Number: PHBS2007US19321

PATIENT
  Age: 57 None
  Sex: Female

DRUGS (1)
  1. LIORESAL INTRATHECAL [Suspect]
     Dosage: 250.3 ug, daily
     Route: 037

REACTIONS (6)
  - Muscle spasticity [Recovering/Resolving]
  - Hypokinesia [Recovering/Resolving]
  - Drug ineffective [Recovering/Resolving]
  - Mobility decreased [None]
  - Device breakage [None]
  - Device dislocation [None]
